FAERS Safety Report 5685062-6 (Version None)
Quarter: 2008Q1

REPORT INFORMATION
  Report Type: 
  Country: None (occurrence: None)
  Receive Date: 20080328
  Receipt Date: 20000417
  Transmission Date: 20080703
  Serious: Yes (Death, Hospitalization, Other)
  Sender: FDA-Public Use
  Company Number: FR-ROCHE-234373

PATIENT
  Age: 71 Year
  Sex: Female

DRUGS (3)
  1. ROCEPHIN [Suspect]
     Route: 065
     Dates: start: 19990105, end: 19990125
  2. OFLOCET [Suspect]
     Route: 042
     Dates: start: 19990111, end: 19990125
  3. DEPAKENE [Concomitant]
     Indication: CONVULSION
     Route: 048
     Dates: start: 19990119, end: 19990126

REACTIONS (4)
  - CONVULSION [None]
  - DEATH [None]
  - DERMATITIS EXFOLIATIVE [None]
  - SUDDEN DEATH [None]
